FAERS Safety Report 6146348-4 (Version None)
Quarter: 2009Q2

REPORT INFORMATION
  Report Type: 
  Country: None (occurrence: None)
  Receive Date: 20090407
  Receipt Date: 20090330
  Transmission Date: 20091009
  Serious: Yes (Other)
  Sender: FDA-Public Use
  Company Number: US-PFIZER INC-2008099765

PATIENT
  Sex: Female
  Weight: 90.909 kg

DRUGS (6)
  1. LIPITOR [Suspect]
     Dosage: UNK
     Dates: start: 20070601, end: 20070701
  2. AMITRIPTYLINE HYDROCHLORIDE [Suspect]
     Indication: PAIN IN EXTREMITY
     Dates: start: 20081117
  3. VALSARTAN [Concomitant]
  4. METOPROLOL [Concomitant]
  5. LASIX [Concomitant]
  6. PROZAC [Concomitant]
     Indication: DEPRESSION

REACTIONS (3)
  - MYALGIA [None]
  - NEUROPATHY PERIPHERAL [None]
  - PAIN IN EXTREMITY [None]
